FAERS Safety Report 4883425-X (Version None)
Quarter: 2006Q1

REPORT INFORMATION
  Report Type: 
  Country: None (occurrence: None)
  Receive Date: 20060118
  Receipt Date: 20050317
  Transmission Date: 20060701
  Serious: Yes (Hospitalization, Other)
  Sender: FDA-Public Use
  Company Number: US-MERCK-0503USA03466

PATIENT
  Age: 52 Year
  Sex: Male
  Weight: 66 kg

DRUGS (8)
  1. VIOXX [Suspect]
     Indication: ARTHRITIS
     Route: 048
     Dates: start: 20000101, end: 20030101
  2. VIOXX [Suspect]
     Route: 048
     Dates: start: 20000101, end: 20030101
  3. VIOXX [Suspect]
     Route: 048
     Dates: start: 20000101, end: 20030101
  4. VIOXX [Suspect]
     Route: 048
     Dates: start: 20000101, end: 20030101
  5. ROBAXIN [Concomitant]
     Route: 065
  6. DALMANE [Concomitant]
     Route: 065
  7. VASOTEC [Concomitant]
     Route: 065
  8. ISONIAZID [Concomitant]
     Route: 065

REACTIONS (15)
  - ANAEMIA [None]
  - CARDIAC FAILURE CONGESTIVE [None]
  - CEREBROVASCULAR ACCIDENT [None]
  - DYSPNOEA [None]
  - GRAFT DYSFUNCTION [None]
  - KIDNEY ENLARGEMENT [None]
  - MYOCARDIAL INFARCTION [None]
  - OEDEMA PERIPHERAL [None]
  - PALPITATIONS [None]
  - PARATHYROID DISORDER [None]
  - PELVIC FRACTURE [None]
  - PULMONARY OEDEMA [None]
  - SHUNT THROMBOSIS [None]
  - SYNCOPE [None]
  - SYNOVIAL CYST [None]
